FAERS Safety Report 14995032 (Version 3)
Quarter: 2019Q1

REPORT INFORMATION
  Report Type: Spontaneous
  Country: JP (occurrence: JP)
  Receive Date: 20180611
  Receipt Date: 20190326
  Transmission Date: 20190417
  Serious: Yes (Death, Hospitalization, Other)
  Sender: FDA-Public Use
  Company Number: JP-009507513-1806JPN000059J

PATIENT
  Age: 77 Year
  Sex: Female

DRUGS (6)
  1. ERELSA TABLETS 50MG [Suspect]
     Active Substance: ELBASVIR
     Dosage: 50 MILLIGRAM, QD
     Route: 048
     Dates: start: 201708, end: 201710
  2. EPINASTINE. [Suspect]
     Active Substance: EPINASTINE HYDROCHLORIDE
     Dosage: 20 MG, QD
     Route: 048
  3. NIFELANTERN CR [Suspect]
     Active Substance: NIFEDIPINE
     Dosage: 20 MG, QD
     Route: 048
  4. VASOLAN [Suspect]
     Active Substance: VERAPAMIL HYDROCHLORIDE
     Dosage: 40 MG, TID
     Route: 048
  5. E KEPPRA [Suspect]
     Active Substance: LEVETIRACETAM
     Dosage: 500 MG, BID
     Route: 048
  6. GRAZYNA TABLETS 50MG [Suspect]
     Active Substance: GRAZOPREVIR
     Dosage: 50 MG, QD
     Route: 048
     Dates: start: 201708, end: 201710

REACTIONS (10)
  - Death [Fatal]
  - Underdose [Unknown]
  - Ileus [Unknown]
  - Intestinal obstruction [Unknown]
  - Vomiting [Recovered/Resolved]
  - Ileus [Unknown]
  - Nausea [Recovered/Resolved]
  - Diarrhoea [Not Recovered/Not Resolved]
  - Intestinal perforation [Unknown]
  - Epistaxis [Unknown]

NARRATIVE: CASE EVENT DATE: 201708
